FAERS Safety Report 13460634 (Version 1)
Quarter: 2017Q2

REPORT INFORMATION
  Report Type: Spontaneous
  Country: US (occurrence: US)
  Receive Date: 20170420
  Receipt Date: 20170420
  Transmission Date: 20170830
  Serious: No
  Sender: FDA-Public Use
  Company Number: US-PFIZER INC-2017169335

PATIENT
  Sex: Female

DRUGS (1)
  1. ADVIL PM [Suspect]
     Active Substance: DIPHENHYDRAMINE CITRATE\IBUPROFEN
     Dosage: 2 DF, AT THE SAME TIME

REACTIONS (4)
  - Intentional product misuse [Unknown]
  - Oropharyngeal pain [Unknown]
  - Product quality issue [Unknown]
  - Oropharyngeal discomfort [Unknown]
